FAERS Safety Report 6620768-3 (Version None)
Quarter: 2010Q1

REPORT INFORMATION
  Report Type: 
  Country: None (occurrence: None)
  Receive Date: 20100309
  Receipt Date: 20100225
  Transmission Date: 20100710
  Serious: Yes (Hospitalization, Other)
  Sender: FDA-Public Use
  Company Number: US-PFIZER INC-2010024982

PATIENT
  Sex: Female
  Weight: 88.889 kg

DRUGS (11)
  1. NEURONTIN [Suspect]
     Indication: NERVE INJURY
     Dosage: 800 MG, 4X/DAY
  2. NEURONTIN [Suspect]
     Indication: CONVULSION
  3. LYRICA [Suspect]
     Indication: FIBROMYALGIA
     Dosage: 150 MG, 2X/DAY
  4. MORPHINE SULFATE [Concomitant]
     Indication: PAIN
     Dosage: 100 MG, 2X/DAY
  5. MORPHINE SULFATE [Concomitant]
     Dosage: 15 MG,5X/DAY
  6. KLONOPIN [Concomitant]
     Indication: PAIN
     Dosage: 1 MG, 3X/DAY
  7. ZANAFLEX [Concomitant]
     Indication: MUSCLE RELAXANT THERAPY
     Dosage: 4 MG, 4X/DAY
  8. AMBIEN [Concomitant]
     Indication: SLEEP DISORDER
     Dosage: 10 MG, AS NEEDED
  9. NIFEDIPINE [Concomitant]
     Indication: HYPERTENSION
     Dosage: 90 MG, 1X/DAY
  10. REGLAN [Concomitant]
     Indication: GASTRIC DISORDER
     Dosage: 10 MG, 4X/DAY
  11. ALLEGRA [Concomitant]
     Indication: HYPERSENSITIVITY
     Dosage: 60 MG, 2X/DAY

REACTIONS (15)
  - ARTHRITIS [None]
  - BALANCE DISORDER [None]
  - BARRETT'S OESOPHAGUS [None]
  - COMPLEX REGIONAL PAIN SYNDROME [None]
  - COORDINATION ABNORMAL [None]
  - DRUG INEFFECTIVE [None]
  - FALL [None]
  - FIBROMYALGIA [None]
  - GAIT DISTURBANCE [None]
  - HAEMOGLOBIN DECREASED [None]
  - HEART RATE IRREGULAR [None]
  - METHYLENETETRAHYDROFOLATE REDUCTASE POLYMORPHISM [None]
  - SPEECH DISORDER [None]
  - SPINAL OSTEOARTHRITIS [None]
  - SYSTEMIC LUPUS ERYTHEMATOSUS [None]
